FAERS Safety Report 6401114-7 (Version None)
Quarter: 2009Q4

REPORT INFORMATION
  Report Type: 
  Country: None (occurrence: None)
  Receive Date: 20091015
  Receipt Date: 20091008
  Transmission Date: 20100525
  Serious: No
  Sender: FDA-Public Use
  Company Number: US-JNJFOC-20091003843

PATIENT
  Sex: Female
  Weight: 45.36 kg

DRUGS (2)
  1. DURAGESIC-100 [Suspect]
     Indication: MYALGIA
     Route: 062
     Dates: start: 20091006
  2. VICODIN [Concomitant]
     Indication: PAIN
     Route: 048

REACTIONS (2)
  - DRUG EFFECT DECREASED [None]
  - INAPPROPRIATE SCHEDULE OF DRUG ADMINISTRATION [None]
